FAERS Safety Report 13587180 (Version 2)
Quarter: 2017Q2

REPORT INFORMATION
  Report Type: Spontaneous
  Country: IT (occurrence: IT)
  Receive Date: 20170526
  Receipt Date: 20170613
  Transmission Date: 20170830
  Serious: Yes (Hospitalization)
  Sender: FDA-Public Use
  Company Number: PHHY2017IT074879

PATIENT
  Age: 75 Year
  Sex: Male

DRUGS (3)
  1. LEXOTAN [Suspect]
     Active Substance: BROMAZEPAM
     Indication: INTENTIONAL SELF-INJURY
     Dosage: 1 DF, TOTAL
     Route: 065
     Dates: start: 20170312, end: 20170312
  2. CITALOPRAM [Suspect]
     Active Substance: CITALOPRAM HYDROBROMIDE
     Indication: INTENTIONAL SELF-INJURY
     Dosage: 1 DF, TOTAL
     Route: 065
     Dates: start: 20170312, end: 20170312
  3. HALCION [Suspect]
     Active Substance: TRIAZOLAM
     Indication: INTENTIONAL SELF-INJURY
     Dosage: 1 DF, TOTAL
     Route: 065
     Dates: start: 20170312, end: 20170312

REACTIONS (2)
  - Depressed level of consciousness [Recovering/Resolving]
  - Drug use disorder [Recovering/Resolving]

NARRATIVE: CASE EVENT DATE: 20170312
